FAERS Safety Report 8979819 (Version 1)
Quarter: 2012Q4

REPORT INFORMATION
  Report Type: 
  Country: US (occurrence: US)
  Receive Date: 20121212
  Receipt Date: 20121212
  Transmission Date: 20130627
  Serious: Yes (Death, Hospitalization)
  Sender: FDA-Public Use
  Company Number: US-ASTELLAS-1089250

PATIENT
  Sex: Male

DRUGS (3)
  1. TARCEVA [Suspect]
     Indication: NON-SMALL CELL LUNG CANCER STAGE IV
     Route: 048
     Dates: start: 200503, end: 200505
  2. GEMZAR [Concomitant]
  3. CARBO ACTIVATUS [Concomitant]

REACTIONS (8)
  - Coagulopathy [Unknown]
  - Disease progression [Fatal]
  - Respiratory failure [Fatal]
  - Dyspnoea [Recovering/Resolving]
  - Hypokinesia [Recovering/Resolving]
  - Rash [Recovering/Resolving]
  - Diarrhoea [Recovering/Resolving]
  - Dyspnoea [Unknown]
